FAERS Safety Report 7223260-0 (Version None)
Quarter: 2011Q1

REPORT INFORMATION
  Report Type: 
  Country: None (occurrence: None)
  Receive Date: 20110112
  Receipt Date: 20100330
  Transmission Date: 20110831
  Serious: No
  Sender: FDA-Public Use
  Company Number: US-ALLERGAN-1004227US

PATIENT
  Age: 52 Year
  Sex: Female

DRUGS (1)
  1. RESTASIS [Suspect]
     Indication: PROPHYLAXIS
     Dosage: 1 GTT, SINGLE
     Dates: start: 20100330, end: 20100303

REACTIONS (1)
  - DYSGEUSIA [None]
